FAERS Safety Report 6037276-3 (Version None)
Quarter: 2009Q1

REPORT INFORMATION
  Report Type: 
  Country: None (occurrence: None)
  Receive Date: 20090114
  Receipt Date: 20090113
  Transmission Date: 20090719
  Serious: Yes (Hospitalization)
  Sender: FDA-Public Use
  Company Number: B0549743A

PATIENT
  Age: 76 Year
  Sex: Female

DRUGS (7)
  1. ARIXTRA [Suspect]
     Indication: THROMBOSIS PROPHYLAXIS
     Dosage: 1.5MG PER DAY
     Route: 058
     Dates: start: 20081121, end: 20081122
  2. PANSPORIN [Concomitant]
     Indication: INFECTION PROPHYLAXIS
     Route: 042
     Dates: start: 20081119, end: 20081122
  3. LOXONIN [Concomitant]
     Route: 048
     Dates: start: 20081120
  4. MUCOSTA [Concomitant]
     Route: 048
     Dates: start: 20081120
  5. DASEN [Concomitant]
     Route: 048
     Dates: start: 20081120
  6. UNKNOWN DRUG [Concomitant]
     Route: 048
     Dates: start: 20081117
  7. BENET [Concomitant]
     Route: 048
     Dates: start: 20081117

REACTIONS (7)
  - HAEMOGLOBIN DECREASED [None]
  - HAEMORRHAGE SUBCUTANEOUS [None]
  - OEDEMA PERIPHERAL [None]
  - PAIN IN EXTREMITY [None]
  - PLATELET COUNT DECREASED [None]
  - PLATELET COUNT INCREASED [None]
  - RED BLOOD CELL COUNT DECREASED [None]
